FAERS Safety Report 14995373 (Version 1)
Quarter: 2018Q2

REPORT INFORMATION
  Report Type: Spontaneous
  Country: US (occurrence: US)
  Receive Date: 20180521
  Receipt Date: 20180521
  Transmission Date: 20180711
  Serious: Yes (Life-Threatening, Hospitalization, Disabling, Other)
  Sender: FDA-Public Use
  Company Number: None

PATIENT
  Age: 37 Year
  Sex: Female
  Weight: 63 kg

DRUGS (1)
  1. NUVARING [Suspect]
     Active Substance: ETHINYL ESTRADIOL\ETONOGESTREL
     Indication: MENSTRUAL CYCLE MANAGEMENT
     Dosage: ?          OTHER STRENGTH:STANDARD;QUANTITY:1 1 NUVARING;OTHER FREQUENCY:PER MONTH;?
     Route: 067
     Dates: start: 20160415, end: 20170710

REACTIONS (8)
  - Depression [None]
  - Frustration tolerance decreased [None]
  - Cerebrovascular accident [None]
  - Brain injury [None]
  - Confusional state [None]
  - Amnesia [None]
  - Mood swings [None]
  - Product quality issue [None]

NARRATIVE: CASE EVENT DATE: 20170710
